FAERS Safety Report 6830589-4 (Version None)
Quarter: 2010Q3

REPORT INFORMATION
  Report Type: 
  Country: None (occurrence: None)
  Receive Date: 20100712
  Receipt Date: 20090717
  Transmission Date: 20110219
  Serious: Yes (Other)
  Sender: FDA-Public Use
  Company Number: US-ASTRAZENECA-2007UW01707

PATIENT
  Age: 44 Year
  Sex: Female
  Weight: 77.1 kg

DRUGS (11)
  1. SEROQUEL [Suspect]
     Indication: BIPOLAR DISORDER
     Route: 048
     Dates: start: 19980101, end: 20080101
  2. SEROQUEL [Suspect]
     Dosage: 25 MG-800MG
     Route: 048
     Dates: start: 20000202
  3. TRAZADON [Concomitant]
     Dates: start: 20000101, end: 20090101
  4. AMIJRIPTYLINE HCL [Concomitant]
     Dates: start: 20080101
  5. RESTORIL [Concomitant]
     Dates: start: 20090101
  6. LUNESTA [Concomitant]
     Dates: start: 20090101
  7. EFFEXOR XR [Concomitant]
     Dosage: 75MG-150 MG
     Route: 048
     Dates: start: 20000202
  8. SINGULAIR [Concomitant]
     Dates: start: 20030528
  9. NEURONTIN [Concomitant]
     Dates: start: 20030528
  10. KLONOPIN [Concomitant]
     Dates: start: 20030528
  11. D4T [Concomitant]
     Dates: start: 20030528

REACTIONS (7)
  - BLOOD CHOLESTEROL INCREASED [None]
  - BLOOD TRIGLYCERIDES INCREASED [None]
  - HYPERGLYCAEMIA [None]
  - HYPERLIPIDAEMIA [None]
  - NERVE INJURY [None]
  - NEUROPATHY PERIPHERAL [None]
  - TYPE 2 DIABETES MELLITUS [None]
